FAERS Safety Report 24307469 (Version 9)
Quarter: 2024Q4

REPORT INFORMATION
  Report Type: Spontaneous
  Country: CN (occurrence: CN)
  Receive Date: 20240911
  Receipt Date: 20241216
  Transmission Date: 20250115
  Serious: Yes (Other)
  Sender: PFIZER
  Company Number: CN-PFIZER INC-PV202300129262

PATIENT
  Age: 51 Year
  Sex: Male

DRUGS (12)
  1. XYNTHA [Suspect]
     Active Substance: ANTIHEMOPHILIC FACTOR, HUMAN RECOMBINANT RESIDUES 743-1636 DELETED
     Indication: Factor VIII deficiency
     Dosage: UNK
     Dates: start: 20220610
  2. XYNTHA [Suspect]
     Active Substance: ANTIHEMOPHILIC FACTOR, HUMAN RECOMBINANT RESIDUES 743-1636 DELETED
     Dosage: QOD
     Route: 042
     Dates: start: 20230615
  3. XYNTHA [Suspect]
     Active Substance: ANTIHEMOPHILIC FACTOR, HUMAN RECOMBINANT RESIDUES 743-1636 DELETED
     Dosage: 3000 IU, 1X/DAY
     Route: 041
     Dates: start: 20230724
  4. XYNTHA [Suspect]
     Active Substance: ANTIHEMOPHILIC FACTOR, HUMAN RECOMBINANT RESIDUES 743-1636 DELETED
     Dosage: QD
     Route: 042
     Dates: start: 20240726
  5. XYNTHA [Suspect]
     Active Substance: ANTIHEMOPHILIC FACTOR, HUMAN RECOMBINANT RESIDUES 743-1636 DELETED
     Dosage: 4000 IU, 1X/DAY
     Route: 042
     Dates: start: 20240905
  6. XYNTHA [Suspect]
     Active Substance: ANTIHEMOPHILIC FACTOR, HUMAN RECOMBINANT RESIDUES 743-1636 DELETED
     Dosage: 4000 IU, 1X/DAY
     Route: 042
     Dates: start: 20240912
  7. XYNTHA [Suspect]
     Active Substance: ANTIHEMOPHILIC FACTOR, HUMAN RECOMBINANT RESIDUES 743-1636 DELETED
     Dosage: 4000 IU, 1X/DAY
     Route: 042
     Dates: start: 20240916
  8. XYNTHA [Suspect]
     Active Substance: ANTIHEMOPHILIC FACTOR, HUMAN RECOMBINANT RESIDUES 743-1636 DELETED
     Dosage: 4000 IU, 1X/DAY
     Route: 042
     Dates: start: 20240923
  9. XYNTHA [Suspect]
     Active Substance: ANTIHEMOPHILIC FACTOR, HUMAN RECOMBINANT RESIDUES 743-1636 DELETED
     Dosage: 4000 IU, 1X/DAY
     Route: 042
     Dates: start: 20240926
  10. XYNTHA [Suspect]
     Active Substance: ANTIHEMOPHILIC FACTOR, HUMAN RECOMBINANT RESIDUES 743-1636 DELETED
     Dosage: 4000 IU, 1X/DAY
     Route: 042
     Dates: start: 20240930
  11. XYNTHA [Suspect]
     Active Substance: ANTIHEMOPHILIC FACTOR, HUMAN RECOMBINANT RESIDUES 743-1636 DELETED
     Dosage: 4000 IU, 1X/DAY
     Route: 042
     Dates: start: 20241007
  12. XYNTHA [Suspect]
     Active Substance: ANTIHEMOPHILIC FACTOR, HUMAN RECOMBINANT RESIDUES 743-1636 DELETED
     Dosage: 4000 IU, 1X/DAY
     Route: 042
     Dates: start: 20241010

REACTIONS (6)
  - Haemarthrosis [Unknown]
  - Gingival bleeding [Not Recovered/Not Resolved]
  - Anti factor VIII antibody increased [Unknown]
  - Arthralgia [Unknown]
  - Arthralgia [Unknown]
  - Off label use [Unknown]

NARRATIVE: CASE EVENT DATE: 20230724
